FAERS Safety Report 5900489-2 (Version None)
Quarter: 2008Q3

REPORT INFORMATION
  Report Type: 
  Country: None (occurrence: None)
  Receive Date: 20080926
  Receipt Date: 20080925
  Transmission Date: 20090109
  Serious: Yes (Other)
  Sender: FDA-Public Use
  Company Number: US-ROXANE LABORATORIES, INC.-2008-RO-00077RO

PATIENT
  Age: 57 Year
  Sex: Female

DRUGS (5)
  1. CYCLOPHOSPHAMIDE [Suspect]
     Indication: BREAST CANCER
  2. TAXOTERE [Suspect]
     Indication: BREAST CANCER
     Dates: end: 20080101
  3. TAXOTERE [Suspect]
     Dates: start: 20080710
  4. ADRIAMYCIN PFS [Suspect]
     Indication: BREAST CANCER
  5. DECADRON [Concomitant]

REACTIONS (6)
  - ADVERSE DRUG REACTION [None]
  - ALVEOLITIS ALLERGIC [None]
  - CHILLS [None]
  - COUGH [None]
  - DYSPNOEA [None]
  - GASTROINTESTINAL TOXICITY [None]
